FAERS Safety Report 8841750 (Version 1)
Quarter: 2012Q4

REPORT INFORMATION
  Report Type: 
  Country: ZA (occurrence: ZA)
  Receive Date: 20121016
  Receipt Date: 20121016
  Transmission Date: 20130627
  Serious: Yes (Hospitalization)
  Sender: FDA-Public Use
  Company Number: ZA-ELI_LILLY_AND_COMPANY-ZA201210001941

PATIENT
  Sex: Male

DRUGS (2)
  1. HUMALOG LISPRO [Suspect]
     Indication: DIABETES MELLITUS
     Dosage: 16 IU, tid
     Route: 058
     Dates: start: 20120424
  2. HUMULIN NPH [Suspect]
     Indication: DIABETES MELLITUS
     Dosage: 16 IU, each evening
     Route: 058
     Dates: start: 20120424

REACTIONS (1)
  - Hernia [Recovering/Resolving]
